FAERS Safety Report 13628140 (Version 2)
Quarter: 2018Q2

REPORT INFORMATION
  Report Type: Spontaneous
  Country: US (occurrence: US)
  Receive Date: 20170608
  Receipt Date: 20180531
  Transmission Date: 20180711
  Serious: No
  Sender: FDA-Public Use
  Company Number: US-PERRIGO-17US001618

PATIENT
  Age: 57 Year
  Sex: Male
  Weight: 92.97 kg

DRUGS (3)
  1. LEVOTHYROXINE. [Concomitant]
     Active Substance: LEVOTHYROXINE
     Indication: HYPOTHYROIDISM
     Dosage: 0.15 MG, QD
     Route: 048
     Dates: start: 20161219
  2. MINOXIDIL. [Suspect]
     Active Substance: MINOXIDIL
     Indication: ALOPECIA
     Dosage: 1/2 CAPFUL, QD
     Route: 061
     Dates: start: 20170211, end: 20170212
  3. VITAMIN D                          /00107901/ [Concomitant]
     Active Substance: ERGOCALCIFEROL
     Indication: VITAMIN D DEFICIENCY
     Dosage: 50000 UNITS, EVERY 2 WEEKS
     Route: 048
     Dates: start: 2012

REACTIONS (6)
  - Syncope [Recovered/Resolved]
  - Headache [Recovering/Resolving]
  - Skin discolouration [Recovering/Resolving]
  - Inappropriate schedule of drug administration [Recovered/Resolved]
  - Blood pressure increased [Unknown]
  - Application site erythema [Recovered/Resolved]

NARRATIVE: CASE EVENT DATE: 20170211
